FAERS Safety Report 8501145-7 (Version None)
Quarter: 2012Q3

REPORT INFORMATION
  Report Type: 
  Country: None (occurrence: None)
  Receive Date: 20120710
  Receipt Date: 20120703
  Transmission Date: 20120928
  Serious: Yes (Hospitalization)
  Sender: FDA-Public Use
  Company Number: US-BAYER-2012-034658

PATIENT
  Age: 27 Year
  Sex: Female

DRUGS (1)
  1. MIRENA [Suspect]
     Indication: CONTRACEPTION
     Dosage: 20 MCG/24HR, CONT
     Route: 015
     Dates: start: 20090813

REACTIONS (11)
  - DEVICE DISLOCATION [None]
  - MENORRHAGIA [None]
  - PROCEDURAL PAIN [None]
  - MEDICAL DEVICE COMPLICATION [None]
  - VAGINAL DISORDER [None]
  - PAIN [None]
  - SEXUAL DYSFUNCTION [None]
  - DEVICE DIFFICULT TO USE [None]
  - DEVICE COMPONENT ISSUE [None]
  - DYSMENORRHOEA [None]
  - HORMONE LEVEL ABNORMAL [None]
